FAERS Safety Report 8612937-8 (Version None)
Quarter: 2012Q3

REPORT INFORMATION
  Report Type: 
  Country: None (occurrence: None)
  Receive Date: 20120822
  Receipt Date: 20120814
  Transmission Date: 20120928
  Serious: Yes (Disabling, Other)
  Sender: FDA-Public Use
  Company Number: CHPA2012US017151

PATIENT
  Age: 64 Year
  Sex: Female

DRUGS (6)
  1. ZEGERID [Concomitant]
  2. MAALOX ANTACID/ANTIGAS MAX QDTABS ASST [Suspect]
     Indication: GASTROOESOPHAGEAL REFLUX DISEASE
     Dosage: 2 DF, QHS PRN
     Route: 048
  3. MISOPROSTOL [Concomitant]
     Indication: CONSTIPATION
     Dosage: UNK, UNK
  4. ZANTAC [Concomitant]
  5. STOOL SOFTENER [Concomitant]
  6. DRUG THERAPY NOS [Concomitant]

REACTIONS (7)
  - MOBILITY DECREASED [None]
  - NERVE COMPRESSION [None]
  - OFF LABEL USE [None]
  - HYPERTENSION [None]
  - HYPOAESTHESIA [None]
  - SPINAL FRACTURE [None]
  - THYROID DISORDER [None]
